FAERS Safety Report 18405442 (Version 2)
Quarter: 2020Q4

REPORT INFORMATION
  Report Type: Report from Study
  Country: CA (occurrence: CA)
  Receive Date: 20201020
  Receipt Date: 20201204
  Transmission Date: 20210114
  Serious: Yes (Other)
  Sender: FDA-Public Use
  Company Number: CA-NALPROPION PHARMACEUTICALS INC.-2020-011440

PATIENT

DRUGS (3)
  1. CONTRAVE [Suspect]
     Active Substance: BUPROPION HYDROCHLORIDE\NALTREXONE HYDROCHLORIDE
     Dosage: 1 TAB QAM AND 1 TAB QPM, 90/8 MILLIGRAM
     Route: 048
     Dates: start: 20200930, end: 20201006
  2. CONTRAVE [Suspect]
     Active Substance: BUPROPION HYDROCHLORIDE\NALTREXONE HYDROCHLORIDE
     Dosage: 2 TAB QAM AND 1 TAB QPM, 90/8 MILLIGRAM
     Route: 048
     Dates: start: 20201007
  3. CONTRAVE [Suspect]
     Active Substance: BUPROPION HYDROCHLORIDE\NALTREXONE HYDROCHLORIDE
     Indication: WEIGHT CONTROL
     Dosage: 1 TAB QAM, 90/8 MILLIGRAM
     Route: 048
     Dates: start: 20200923, end: 20200929

REACTIONS (10)
  - Drug titration error [Unknown]
  - Malaise [Unknown]
  - Knee arthroplasty [Unknown]
  - Labelled drug-food interaction medication error [Unknown]
  - Gastrointestinal disorder [Not Recovered/Not Resolved]
  - Diarrhoea [Unknown]
  - Cholecystectomy [Unknown]
  - Joint range of motion decreased [Not Recovered/Not Resolved]
  - Nausea [Not Recovered/Not Resolved]
  - Dyspepsia [Unknown]

NARRATIVE: CASE EVENT DATE: 2020
